FAERS Safety Report 7779171-5 (Version None)
Quarter: 2011Q3

REPORT INFORMATION
  Report Type: 
  Country: None (occurrence: None)
  Receive Date: 20110926
  Receipt Date: 20110920
  Transmission Date: 20111222
  Serious: Yes (Death, Other)
  Sender: FDA-Public Use
  Company Number: PHHY2011JP54931

PATIENT
  Sex: Female

DRUGS (7)
  1. METHYLPREDNISOLONE SODIUM SUCCINATE [Suspect]
     Dosage: 8 MG, UNK
     Dates: end: 20081104
  2. MYCOPHENOLATE MOFETIL (CELLCEPT) [Suspect]
     Indication: RENAL TRANSPLANT
     Dosage: 500 MG, DAILY
     Dates: start: 20080913, end: 20081017
  3. METHYLPREDNISOLONE SODIUM SUCCINATE [Suspect]
     Dosage: 20 MG, UNK
     Dates: start: 20080917
  4. PROGRAF [Suspect]
     Dosage: 1 MG, UNK
     Dates: start: 20080917
  5. PROGRAF [Suspect]
     Dosage: 0.24 MG, UNK
     Dates: end: 20081110
  6. SIMULECT [Suspect]
     Indication: RENAL TRANSPLANT
     Dosage: 10 MG
     Route: 042
     Dates: start: 20080916, end: 20080916
  7. SIMULECT [Suspect]
     Dosage: 10 MG
     Route: 042
     Dates: start: 20080920, end: 20080920

REACTIONS (6)
  - GASTROINTESTINAL HAEMORRHAGE [None]
  - RENAL FAILURE [None]
  - FUNGAL PERITONITIS [None]
  - CEREBRAL HAEMORRHAGE [None]
  - CONDITION AGGRAVATED [None]
  - HEPATIC NECROSIS [None]
